FAERS Safety Report 4706582-4 (Version None)
Quarter: 2005Q3

REPORT INFORMATION
  Report Type: 
  Country: None (occurrence: None)
  Receive Date: 20050705
  Receipt Date: 20050623
  Transmission Date: 20060218
  Serious: Yes (Hospitalization)
  Sender: FDA-Public Use
  Company Number: 2005AP03551

PATIENT
  Age: 65 Year
  Sex: Female

DRUGS (4)
  1. IRESSA [Suspect]
     Indication: LUNG NEOPLASM MALIGNANT
     Route: 048
     Dates: start: 20030301
  2. DICLOFENAK [Concomitant]
  3. MORFIN [Concomitant]
  4. AVELOX [Concomitant]

REACTIONS (3)
  - DIARRHOEA [None]
  - PLEURISY [None]
  - PLEURITIC PAIN [None]
